FAERS Safety Report 6507208-X (Version None)
Quarter: 2009Q4

REPORT INFORMATION
  Report Type: 
  Country: None (occurrence: None)
  Receive Date: 20091221
  Receipt Date: 20091210
  Transmission Date: 20100525
  Serious: Yes (Other)
  Sender: FDA-Public Use
  Company Number: PHHY2009BR54802

PATIENT
  Age: 64 Year
  Sex: Female
  Weight: 53.5 kg

DRUGS (3)
  1. FORASEQ [Suspect]
     Indication: ASTHMA
     Dosage: 1 CAPSULE OF EACH SUBSTANCE, THRICE A DAY
     Dates: start: 20090708
  2. FORASEQ [Suspect]
     Dosage: TWICE A DAY (IN THE MORNING AND AT NIGHT)
     Dates: start: 20090713, end: 20091001
  3. SPIRIVA [Concomitant]
     Dosage: 1 CAPSULE IN THE MORNING
     Dates: start: 20091006

REACTIONS (14)
  - ACTIVITIES OF DAILY LIVING IMPAIRED [None]
  - ASTHENIA [None]
  - BURNING SENSATION [None]
  - CHEILITIS [None]
  - EYE DISORDER [None]
  - GENERALISED OEDEMA [None]
  - LIMB DISCOMFORT [None]
  - LIP SWELLING [None]
  - MUSCLE CONTRACTIONS INVOLUNTARY [None]
  - OEDEMA PERIPHERAL [None]
  - PAIN IN EXTREMITY [None]
  - SWOLLEN TONGUE [None]
  - THROAT TIGHTNESS [None]
  - VISION BLURRED [None]
